FAERS Safety Report 8862265 (Version 3)
Quarter: 2014Q2

REPORT INFORMATION
  Report Type: Spontaneous
  Country: US (occurrence: US)
  Receive Date: 20121026
  Receipt Date: 20140616
  Transmission Date: 20141212
  Serious: Yes (Other)
  Sender: FDA-Public Use
  Company Number: US-ROCHE-1148886

PATIENT
  Sex: Female
  Weight: 136.2 kg

DRUGS (2)
  1. ACCUTANE [Suspect]
     Indication: ACNE CYSTIC
     Route: 065
     Dates: start: 198007, end: 1996
  2. ACCUTANE [Suspect]
     Route: 065
     Dates: start: 199609, end: 199612

REACTIONS (5)
  - Inflammatory bowel disease [Unknown]
  - Irritable bowel syndrome [Unknown]
  - Depression [Unknown]
  - Osteoarthritis [Unknown]
  - Acne [Unknown]
